FAERS Safety Report 17606855 (Version 2)
Quarter: 2020Q2

REPORT INFORMATION
  Report Type: Report from Study
  Country: TH (occurrence: TH)
  Receive Date: 20200331
  Receipt Date: 20200420
  Transmission Date: 20200713
  Serious: Yes (Death, Hospitalization, Other)
  Sender: FDA-Public Use
  Company Number: TH-BAYER-2019-192279

PATIENT
  Age: 77 Year
  Sex: Female

DRUGS (3)
  1. STIVARGA [Suspect]
     Active Substance: REGORAFENIB
     Indication: COLORECTAL CANCER
     Dosage: 120 MG PER DAY
     Dates: start: 20190522, end: 20190831
  2. STIVARGA [Suspect]
     Active Substance: REGORAFENIB
     Indication: COLORECTAL CANCER
     Dosage: 80 MG PER DAY
     Dates: start: 20190814, end: 2019
  3. STIVARGA [Suspect]
     Active Substance: REGORAFENIB
     Indication: COLORECTAL CANCER
     Dosage: 40 MG
     Route: 048
     Dates: start: 20191216, end: 202001

REACTIONS (15)
  - Metastases to liver [None]
  - Metastases to lung [None]
  - Nausea [None]
  - Hypoaesthesia [None]
  - Colorectal cancer [Fatal]
  - Metastases to spleen [None]
  - Oropharyngeal pain [None]
  - Dysphonia [None]
  - Alopecia [None]
  - Anaemia [None]
  - Feeding disorder [None]
  - Abdominal pain upper [None]
  - Feeding disorder [None]
  - Hypertension [None]
  - Metastases to lymph nodes [None]

NARRATIVE: CASE EVENT DATE: 201908
